FAERS Safety Report 25197819 (Version 2)
Quarter: 2025Q2

REPORT INFORMATION
  Report Type: Spontaneous
  Country: US (occurrence: US)
  Receive Date: 20250415
  Receipt Date: 20250422
  Transmission Date: 20250717
  Serious: Yes (Hospitalization, Other)
  Sender: RANBAXY
  Company Number: US-SUN PHARMACEUTICAL INDUSTRIES LTD-2025R1-503439

PATIENT
  Age: 40 Year
  Sex: Female
  Weight: 51 kg

DRUGS (1)
  1. LIDOCAINE [Suspect]
     Active Substance: LIDOCAINE
     Indication: Local anaesthesia
     Route: 065

REACTIONS (10)
  - Generalised tonic-clonic seizure [Recovered/Resolved]
  - Toxicity to various agents [Unknown]
  - Accidental overdose [Unknown]
  - Extra dose administered [Unknown]
  - Paraesthesia [Unknown]
  - Sinus tachycardia [Unknown]
  - Irritability [Unknown]
  - Muscle spasticity [Unknown]
  - Tremor [Unknown]
  - Paraesthesia oral [Unknown]
